FAERS Safety Report 9829089 (Version 1)
Quarter: 2014Q1

REPORT INFORMATION
  Report Type: Spontaneous
  Country: GB (occurrence: GB)
  Receive Date: 20140119
  Receipt Date: 20140119
  Transmission Date: 20141002
  Serious: Yes (Other)
  Sender: FDA-Public Use
  Company Number: GB-MERCK-1401GBR006417

PATIENT
  Age: 70 Year
  Sex: Female
  Weight: 67.95 kg

DRUGS (4)
  1. EZETROL [Suspect]
     Indication: HYPERCHOLESTEROLAEMIA
     Dosage: UNK
     Route: 048
     Dates: start: 2010, end: 20130103
  2. LIPITOR [Suspect]
     Dosage: UNK
     Route: 048
     Dates: start: 2005, end: 2009
  3. LEVOTHYROXINE SODIUM [Concomitant]
     Route: 048
  4. AMLODIPINE [Concomitant]

REACTIONS (2)
  - Muscular weakness [Recovered/Resolved with Sequelae]
  - Pain [Recovered/Resolved with Sequelae]
